FAERS Safety Report 9473495 (Version 2)
Quarter: 2014Q4

REPORT INFORMATION
  Report Type: Spontaneous
  Country: US (occurrence: US)
  Receive Date: 20130823
  Receipt Date: 20141205
  Transmission Date: 20150529
  Serious: No
  Sender: FDA-Public Use
  Company Number: US-BRISTOL-MYERS SQUIBB COMPANY-19034396

PATIENT
  Age: 51 Year
  Sex: Male

DRUGS (6)
  1. ADVIL [Concomitant]
     Active Substance: IBUPROFEN
  2. SPRYCEL [Suspect]
     Active Substance: DASATINIB
     Indication: CHRONIC MYELOID LEUKAEMIA
     Dosage: INTERRUPTED: 07OCT2013
     Route: 048
     Dates: start: 20121007
  3. NORCO [Concomitant]
     Active Substance: ACETAMINOPHEN\HYDROCODONE BITARTRATE
  4. METHOTREXATE [Concomitant]
     Active Substance: METHOTREXATE
  5. LYRICA [Concomitant]
     Active Substance: PREGABALIN
  6. MINOCYCLINE [Concomitant]
     Active Substance: MINOCYCLINE\MINOCYCLINE HYDROCHLORIDE
     Indication: ACNE

REACTIONS (8)
  - Faeces discoloured [Unknown]
  - Constipation [Unknown]
  - Oropharyngeal pain [Unknown]
  - Pain [Recovered/Resolved]
  - Fatigue [Unknown]
  - Hyperhidrosis [Unknown]
  - Contusion [Unknown]
  - Wound haemorrhage [Unknown]
